FAERS Safety Report 9408488 (Version 2)
Quarter: 2013Q3

REPORT INFORMATION
  Report Type: Spontaneous
  Country: US (occurrence: US)
  Receive Date: 20130718
  Receipt Date: 20130722
  Transmission Date: 20140515
  Serious: Yes (Other)
  Sender: FDA-Public Use
  Company Number: CHPA2013US011143

PATIENT
  Age: 83 Year
  Sex: Female

DRUGS (3)
  1. VOLTAREN GEL [Suspect]
     Indication: ARTHRITIS
     Dosage: 4 G, QID
     Route: 065
     Dates: start: 201306
  2. VOLTAREN GEL [Suspect]
     Indication: INTERVERTEBRAL DISC PROTRUSION
  3. ANTIBIOTICS [Concomitant]

REACTIONS (14)
  - Infection [Recovered/Resolved]
  - Fall [Recovered/Resolved]
  - Chest pain [Not Recovered/Not Resolved]
  - Dizziness [Recovered/Resolved]
  - Decreased appetite [Unknown]
  - Dyspnoea [Recovered/Resolved]
  - Dysgeusia [Recovered/Resolved]
  - Fatigue [Recovered/Resolved]
  - Asthenia [Recovered/Resolved]
  - Nausea [Recovered/Resolved]
  - Rash [Recovered/Resolved]
  - Drug ineffective for unapproved indication [Unknown]
  - Drug administered at inappropriate site [Unknown]
  - Drug ineffective [Unknown]
